FAERS Safety Report 8421751-8 (Version None)
Quarter: 2012Q2

REPORT INFORMATION
  Report Type: 
  Country: None (occurrence: None)
  Receive Date: 20120608
  Receipt Date: 20120529
  Transmission Date: 20120825
  Serious: Yes (Other)
  Sender: FDA-Public Use
  Company Number: AU-BRISTOL-MYERS SQUIBB COMPANY-16651739

PATIENT

DRUGS (1)
  1. HYDREA [Suspect]

REACTIONS (2)
  - IMPAIRED HEALING [None]
  - GASTRIC ULCER [None]
